FAERS Safety Report 5326936-5 (Version None)
Quarter: 2007Q2

REPORT INFORMATION
  Report Type: 
  Country: None (occurrence: None)
  Receive Date: 20070511
  Receipt Date: 20070427
  Transmission Date: 20071010
  Serious: No
  Sender: FDA-Public Use
  Company Number: 070054

PATIENT
  Age: 51 Year
  Sex: Female
  Weight: 60.782 kg

DRUGS (1)
  1. HALFLYTELY [Suspect]
     Indication: COLONOSCOPY
     Dosage: 20MG/2L, 1X, PO
     Route: 048
     Dates: start: 20070426

REACTIONS (4)
  - COLITIS ISCHAEMIC [None]
  - MUSCLE SPASMS [None]
  - RECTAL HAEMORRHAGE [None]
  - VOMITING [None]
